FAERS Safety Report 14322360 (Version 4)
Quarter: 2018Q3

REPORT INFORMATION
  Report Type: Spontaneous
  Country: FR (occurrence: FR)
  Receive Date: 20171225
  Receipt Date: 20180821
  Transmission Date: 20181010
  Serious: Yes (Hospitalization, Other)
  Sender: FDA-Public Use
  Company Number: PHHY2017FR191859

PATIENT
  Age: 42 Year
  Sex: Male

DRUGS (10)
  1. 5?FLUOROURACIL [Suspect]
     Active Substance: FLUOROURACIL
     Dosage: 5500, MG (1200 MG/M2, NAMELY 5500 MG TOTAL DOSE)
     Route: 042
  2. 5?FLUOROURACIL [Suspect]
     Active Substance: FLUOROURACIL
     Indication: OESOPHAGEAL ADENOCARCINOMA
     Dosage: 920 MG, (400 MG/M2, NAMELY 190 MG TOTAL DOSE IN 500 ML OF G5%, 3 CYCLES)
     Route: 040
  3. FOLINIC ACID [Concomitant]
     Active Substance: LEUCOVORIN
     Indication: METASTASES TO LIVER
     Dosage: UNK
     Route: 042
  4. OXALIPLATIN. [Suspect]
     Active Substance: OXALIPLATIN
     Indication: METASTASES TO LIVER
  5. FOLINIC ACID [Concomitant]
     Active Substance: LEUCOVORIN
     Indication: GASTROINTESTINAL CANCER METASTATIC
  6. GLUCOSE [Concomitant]
     Active Substance: DEXTROSE
     Indication: PRODUCT USED FOR UNKNOWN INDICATION
     Dosage: 100 ML
     Route: 040
  7. SODIUM CHLORIDE. [Concomitant]
     Active Substance: SODIUM CHLORIDE
     Indication: PRODUCT USED FOR UNKNOWN INDICATION
     Dosage: 140 ML
     Route: 042
  8. OXALIPLATIN. [Suspect]
     Active Substance: OXALIPLATIN
     Indication: OESOPHAGEAL ADENOCARCINOMA
     Dosage: 190 MG, UNK (85 MG/M2, NAMELY 190 MG TOTAL DOSE IN 500 ML OF G5%) ONE CYCLE
     Route: 042
  9. FOLINIC ACID [Concomitant]
     Active Substance: LEUCOVORIN
     Indication: OESOPHAGEAL ADENOCARCINOMA
  10. GLUCOSE [Concomitant]
     Active Substance: DEXTROSE
     Dosage: 500 ML
     Route: 042

REACTIONS (11)
  - Mediastinal disorder [Unknown]
  - Cardiotoxicity [Unknown]
  - Catheter site extravasation [Recovered/Resolved]
  - Pain [Unknown]
  - Chest discomfort [Unknown]
  - Vocal cord paralysis [Unknown]
  - Toxicity to various agents [Unknown]
  - Administration site extravasation [Unknown]
  - Cough [Unknown]
  - Dysphonia [Recovered/Resolved]
  - Bronchospasm [Unknown]
